FAERS Safety Report 7251474-2 (Version None)
Quarter: 2011Q1

REPORT INFORMATION
  Report Type: 
  Country: None (occurrence: None)
  Receive Date: 20110128
  Receipt Date: 20110120
  Transmission Date: 20110831
  Serious: Yes (Other)
  Sender: FDA-Public Use
  Company Number: PHHY2010CA01896

PATIENT
  Sex: Female

DRUGS (1)
  1. SANDOSTATIN LAR [Suspect]
     Indication: NEUROENDOCRINE TUMOUR
     Dosage: 60 MG EVERY 4 WEEKS
     Route: 030
     Dates: start: 20100111

REACTIONS (23)
  - LOSS OF CONSCIOUSNESS [None]
  - PNEUMONIA [None]
  - ABDOMINAL PAIN [None]
  - COUGH [None]
  - FAECES DISCOLOURED [None]
  - NERVOUSNESS [None]
  - BURNING SENSATION [None]
  - FLUSHING [None]
  - BRONCHOSCOPY [None]
  - BLOOD PRESSURE INCREASED [None]
  - ACTIVITIES OF DAILY LIVING IMPAIRED [None]
  - SEPSIS [None]
  - HOT FLUSH [None]
  - LUNG NEOPLASM [None]
  - DEFAECATION URGENCY [None]
  - HYPOPHAGIA [None]
  - NASOPHARYNGITIS [None]
  - NAUSEA [None]
  - DIZZINESS [None]
  - RECTAL TENESMUS [None]
  - DYSPNOEA [None]
  - DIARRHOEA [None]
  - NASAL CONGESTION [None]
